FAERS Safety Report 16617763 (Version 2)
Quarter: 2019Q3

REPORT INFORMATION
  Report Type: Spontaneous
  Country: RO (occurrence: RO)
  Receive Date: 20190723
  Receipt Date: 20190905
  Transmission Date: 20191004
  Serious: Yes (Other)
  Sender: FDA-Public Use
  Company Number: RO-PFIZER INC-2019312978

PATIENT
  Age: 32 Year
  Sex: Male

DRUGS (4)
  1. DEXAMETHASONE. [Suspect]
     Active Substance: DEXAMETHASONE
     Indication: HODGKIN^S DISEASE NODULAR SCLEROSIS
     Dosage: UNK, CYCLIC (ONE COURSE)
     Dates: start: 201701, end: 201702
  2. CISPLATIN. [Suspect]
     Active Substance: CISPLATIN
     Indication: HODGKIN^S DISEASE NODULAR SCLEROSIS
     Dosage: UNK, CYCLIC (ONE COURSE)
     Dates: start: 201701, end: 201702
  3. CYTARABINE. [Suspect]
     Active Substance: CYTARABINE
     Indication: HODGKIN^S DISEASE NODULAR SCLEROSIS
     Dosage: UNK, CYCLIC (ONE COURSE)
     Dates: start: 201701, end: 201702
  4. GEMCITABINE HYDROCHLORIDE. [Suspect]
     Active Substance: GEMCITABINE HYDROCHLORIDE
     Indication: HODGKIN^S DISEASE NODULAR SCLEROSIS
     Dosage: UNK, CYCLIC (SIX COURSES)
     Dates: start: 201801, end: 201804

REACTIONS (2)
  - Pancytopenia [Unknown]
  - Infection [Unknown]

NARRATIVE: CASE EVENT DATE: 2017
